FAERS Safety Report 21397478 (Version 1)
Quarter: 2022Q3

REPORT INFORMATION
  Report Type: Spontaneous
  Country: US (occurrence: None)
  Receive Date: 20220930
  Receipt Date: 20220930
  Transmission Date: 20221027
  Serious: Yes (Hospitalization)
  Sender: FDA-Public Use
  Company Number: None

PATIENT
  Age: 18 Year
  Sex: Male
  Weight: 51.5 kg

DRUGS (4)
  1. PAXLOVID [Suspect]
     Active Substance: NIRMATRELVIR\RITONAVIR
     Indication: COVID-19
     Dosage: FREQUENCY : TWICE A DAY;?
     Route: 048
     Dates: start: 20220925, end: 20220926
  2. TACROLIMUS [Concomitant]
     Active Substance: TACROLIMUS
     Dates: start: 20190804
  3. PREDNISONE [Concomitant]
     Active Substance: PREDNISONE
     Dates: start: 20190804
  4. MYFORTIC [Concomitant]
     Active Substance: MYCOPHENOLATE SODIUM
     Dates: start: 20190804

REACTIONS (10)
  - Immunosuppressant drug level increased [None]
  - Acute kidney injury [None]
  - Dehydration [None]
  - Diarrhoea [None]
  - Graft complication [None]
  - Complications of transplanted kidney [None]
  - Product communication issue [None]
  - COVID-19 [None]
  - Disease complication [None]
  - Therapeutic drug monitoring analysis not performed [None]

NARRATIVE: CASE EVENT DATE: 20220928
